FAERS Safety Report 21268461 (Version 3)
Quarter: 2022Q4

REPORT INFORMATION
  Report Type: Other
  Country: US (occurrence: None)
  Receive Date: 20220830
  Receipt Date: 20221018
  Transmission Date: 20230113
  Serious: Yes (Life-Threatening, Hospitalization)
  Sender: FDA-Public Use
  Company Number: US-ROCHE-3162141

PATIENT
  Age: 50 Year
  Sex: Female

DRUGS (16)
  1. OCRELIZUMAB [Suspect]
     Active Substance: OCRELIZUMAB
     Indication: Multiple sclerosis
     Route: 065
     Dates: start: 20201002, end: 20201002
  2. OCRELIZUMAB [Suspect]
     Active Substance: OCRELIZUMAB
     Route: 065
     Dates: start: 20201016, end: 20201016
  3. OCRELIZUMAB [Suspect]
     Active Substance: OCRELIZUMAB
     Route: 065
     Dates: start: 20210416, end: 20210416
  4. DULOXETINE [Concomitant]
     Active Substance: DULOXETINE
  5. IMIPRAMINE PAMOATE [Concomitant]
     Active Substance: IMIPRAMINE PAMOATE
  6. METHOCARBAMOL [Concomitant]
     Active Substance: METHOCARBAMOL
  7. BACLOFEN [Concomitant]
     Active Substance: BACLOFEN
  8. CLONAZEPAM [Concomitant]
     Active Substance: CLONAZEPAM
  9. NIFEDIPINE [Concomitant]
     Active Substance: NIFEDIPINE
     Dates: start: 20200826
  10. ASCORBIC ACID [Concomitant]
     Active Substance: ASCORBIC ACID
  11. CALCIUM [Concomitant]
     Active Substance: CALCIUM
  12. CHOLECALCIFEROL [Concomitant]
     Active Substance: CHOLECALCIFEROL
  13. ARIPIPRAZOLE [Concomitant]
     Active Substance: ARIPIPRAZOLE
     Indication: Depression
     Dates: start: 202203
  14. OFATUMUMAB [Concomitant]
     Active Substance: OFATUMUMAB
     Dates: start: 20220617
  15. ACETAMINOPHEN [Concomitant]
     Active Substance: ACETAMINOPHEN
     Dates: start: 20220617
  16. CANNABIS SATIVA SUBSP. INDICA TOP [Concomitant]
     Active Substance: CANNABIS SATIVA SUBSP. INDICA TOP

REACTIONS (2)
  - Cholangitis acute [Recovered/Resolved]
  - Cholecystitis [Recovered/Resolved]

NARRATIVE: CASE EVENT DATE: 20220520
